FAERS Safety Report 10798577 (Version 2)
Quarter: 2015Q2

REPORT INFORMATION
  Report Type: Spontaneous
  Country: US (occurrence: US)
  Receive Date: 20150216
  Receipt Date: 20150505
  Transmission Date: 20150821
  Serious: Yes (Death, Other)
  Sender: FDA-Public Use
  Company Number: US-GLAXOSMITHKLINE-US2015019552

PATIENT
  Age: 71 Year
  Sex: Female

DRUGS (5)
  1. LIPITOR [Concomitant]
     Active Substance: ATORVASTATIN CALCIUM
  2. ADVIL [Interacting]
     Active Substance: IBUPROFEN
     Indication: PRODUCT USED FOR UNKNOWN INDICATION
     Dosage: UNK, U
  3. ADVIL [Interacting]
     Active Substance: IBUPROFEN
     Dosage: UNK, QD
     Dates: start: 201501
  4. MEKINIST [Suspect]
     Active Substance: TRAMETINIB DIMETHYL SULFOXIDE
     Indication: METASTATIC MALIGNANT MELANOMA
     Dosage: UNK, U
  5. TAFINLAR [Interacting]
     Active Substance: DABRAFENIB MESYLATE
     Indication: METASTATIC MALIGNANT MELANOMA
     Dosage: UNK, U

REACTIONS (11)
  - Anaemia [Unknown]
  - Death [Fatal]
  - Constipation [Not Recovered/Not Resolved]
  - Limb discomfort [Recovered/Resolved]
  - Abdominal pain upper [Not Recovered/Not Resolved]
  - Fatigue [Not Recovered/Not Resolved]
  - Gastric haemorrhage [Unknown]
  - Insomnia [Not Recovered/Not Resolved]
  - White blood cell count [Not Recovered/Not Resolved]
  - Haematemesis [Unknown]
  - Drug interaction [Unknown]

NARRATIVE: CASE EVENT DATE: 20150113
